FAERS Safety Report 16439886 (Version 1)
Quarter: 2019Q3

REPORT INFORMATION
  Report Type: Spontaneous
  Country: US (occurrence: US)
  Receive Date: 20190615
  Receipt Date: 20190615
  Transmission Date: 20191004
  Serious: Yes (Other)
  Sender: FDA-Public Use
  Company Number: None

PATIENT
  Age: 69 Year
  Sex: Male
  Weight: 91.35 kg

DRUGS (8)
  1. METROPROLOL [Concomitant]
     Active Substance: METOPROLOL
  2. VITAMIN C [Concomitant]
     Active Substance: ASCORBIC ACID
  3. PANTROPRASOL [Concomitant]
  4. ROSUVASTATIN. [Concomitant]
     Active Substance: ROSUVASTATIN
  5. XARELTO [Suspect]
     Active Substance: RIVAROXABAN
     Indication: ANTICOAGULANT THERAPY
     Dosage: ?          QUANTITY:25 TABLET(S);?
     Route: 048
     Dates: start: 20190524, end: 20190611
  6. CENTRUM SILVER [Concomitant]
     Active Substance: MINERALS\VITAMINS
  7. NIACIN. [Concomitant]
     Active Substance: NIACIN
  8. RAMIPRIL. [Concomitant]
     Active Substance: RAMIPRIL

REACTIONS (4)
  - Insomnia [None]
  - Feeling cold [None]
  - Rash pruritic [None]
  - Pain of skin [None]

NARRATIVE: CASE EVENT DATE: 20190524
